FAERS Safety Report 7353695-7 (Version None)
Quarter: 2011Q1

REPORT INFORMATION
  Report Type: 
  Country: None (occurrence: None)
  Receive Date: 20110315
  Receipt Date: 20090618
  Transmission Date: 20110831
  Serious: Yes (Other)
  Sender: FDA-Public Use
  Company Number: US-BAYER-200923726NA

PATIENT
  Sex: Male
  Weight: 92.971 kg

DRUGS (14)
  1. OXYCODONE [Concomitant]
     Dosage: 5-325 MG
     Route: 048
     Dates: start: 20070816
  2. ISOVUE-128 [Concomitant]
     Dosage: 55 ML, UNK
  3. METOPROLOL [Concomitant]
     Dosage: 2.5 - 5 MG
     Route: 042
     Dates: start: 20070816
  4. VASOPRESSIN [Concomitant]
     Dosage: 0.4 UNITS/MIN
     Route: 042
     Dates: start: 20070822
  5. DOPAMINE [Concomitant]
     Dosage: 3 MCG/KG/MIN
     Route: 042
     Dates: start: 20070830
  6. DIURETICS [Concomitant]
  7. TRANDOLAPRIL [Concomitant]
     Dosage: 2 MG, UNK
     Route: 048
     Dates: start: 20070816
  8. CLONIDINE [Concomitant]
     Dosage: 0.1 MG, UNK
     Route: 060
     Dates: start: 20070829
  9. ISOVUE-300 [Concomitant]
     Dosage: 24 ML, UNK
  10. TRASYLOL [Suspect]
     Indication: CORONARY ARTERY BYPASS
     Dosage: 200 ML, UNK
     Route: 042
     Dates: start: 20070830, end: 20070830
  11. INSULIN [Concomitant]
     Dosage: 2-10 UNITS/HR
     Route: 042
     Dates: start: 20070830
  12. ISOVUE-128 [Concomitant]
  13. EPINEPHRINE [Concomitant]
     Dosage: TITRATED
     Route: 042
     Dates: start: 20070830, end: 20070830
  14. MOTRIN [Concomitant]
     Indication: ARTHRITIS
     Dosage: 1-2 TABS
     Route: 048

REACTIONS (12)
  - RENAL INJURY [None]
  - ANXIETY [None]
  - PAIN [None]
  - RENAL FAILURE [None]
  - INJURY [None]
  - MULTI-ORGAN FAILURE [None]
  - FEAR [None]
  - UNEVALUABLE EVENT [None]
  - RENAL IMPAIRMENT [None]
  - ANHEDONIA [None]
  - EMOTIONAL DISTRESS [None]
  - STRESS [None]
